FAERS Safety Report 7884905-5 (Version None)
Quarter: 2011Q4

REPORT INFORMATION
  Report Type: 
  Country: None (occurrence: None)
  Receive Date: 20111102
  Receipt Date: 20111026
  Transmission Date: 20120403
  Serious: Yes (Other)
  Sender: FDA-Public Use
  Company Number: FR-GILEAD-2011-0045946

PATIENT
  Sex: Male

DRUGS (5)
  1. INVIRASE [Concomitant]
     Indication: HIV INFECTION
     Dosage: UNK
     Dates: start: 19970101
  2. TRUVADA [Suspect]
     Indication: HIV INFECTION
     Dosage: 1 UNK, UNK
     Route: 048
     Dates: start: 20110708, end: 20110920
  3. COMBIVIR [Concomitant]
     Indication: HIV INFECTION
     Dosage: UNK
     Dates: start: 19970101
  4. REYATAZ [Suspect]
     Indication: HIV INFECTION
     Dosage: 1 UNK, UNK
     Route: 048
     Dates: start: 20110708, end: 20110809
  5. NORVIR [Suspect]
     Indication: HIV INFECTION
     Dosage: 1 UNK, UNK
     Route: 048
     Dates: start: 20110708, end: 20110920

REACTIONS (5)
  - SLEEP DISORDER [None]
  - FLATULENCE [None]
  - NAUSEA [None]
  - OCULAR ICTERUS [None]
  - VERTIGO [None]
